FAERS Safety Report 5116286-4 (Version None)
Quarter: 2006Q3

REPORT INFORMATION
  Report Type: 
  Country: None (occurrence: None)
  Receive Date: 20060927
  Receipt Date: 20060704
  Transmission Date: 20061208
  Serious: Yes (Other)
  Sender: FDA-Public Use
  Company Number: DE-NOVOPROD-254621

PATIENT
  Age: 64 Year
  Sex: Female
  Weight: 65 kg

DRUGS (25)
  1. NOVONORM [Suspect]
     Indication: DIABETES MELLITUS NON-INSULIN-DEPENDENT
     Dosage: .5 MG, QID
     Route: 048
     Dates: start: 20040101
  2. PROPOFOL [Concomitant]
  3. BISOPROLOL FUMARATE [Concomitant]
  4. LANTUS [Concomitant]
     Dosage: 16 IE, QD
  5. FENTANYL [Concomitant]
  6. NIMBEX [Concomitant]
  7. DIPIDOLOR [Concomitant]
  8. LASIX                              /00032601/ [Concomitant]
  9. SOLU DECORTIN [Concomitant]
  10. ZINACEF                            /00454601/ [Concomitant]
  11. SANDIMMUNE [Concomitant]
  12. MANNITOL [Concomitant]
  13. PARACETAMOL [Concomitant]
  14. MOXONIDIN [Concomitant]
  15. DIOVAN                             /01319601/ [Concomitant]
  16. EBRANTIL                           /00631801/ [Concomitant]
  17. FUROSEMID                          /00032601/ [Concomitant]
  18. XIPAMID [Concomitant]
  19. L-THYROXIN [Concomitant]
  20. SIMVASTATIN [Concomitant]
  21. VENTOLAIR [Concomitant]
  22. OXIS                               /00958001/ [Concomitant]
  23. ASPIRIN [Concomitant]
  24. MADOPAR                            /00349201/ [Concomitant]
  25. CA                                 /00129401/ [Concomitant]

REACTIONS (2)
  - HYPOGLYCAEMIC COMA [None]
  - URINARY TRACT INFECTION [None]
